FAERS Safety Report 8399819-4 (Version None)
Quarter: 2012Q2

REPORT INFORMATION
  Report Type: 
  Country: None (occurrence: None)
  Receive Date: 20120531
  Receipt Date: 20120521
  Transmission Date: 20120825
  Serious: Yes (Disabling)
  Sender: FDA-Public Use
  Company Number: GB-BAUSCH-2012BL001473

PATIENT
  Age: 33 Year
  Sex: Male
  Weight: 90 kg

DRUGS (1)
  1. PREDNISOLONE [Suspect]
     Indication: NASAL POLYPS
     Route: 048
     Dates: start: 20100601, end: 20100601

REACTIONS (2)
  - MYOSITIS [None]
  - OSTEONECROSIS [None]
